FAERS Safety Report 23679324 (Version 4)
Quarter: 2024Q3

REPORT INFORMATION
  Report Type: Spontaneous
  Country: CH (occurrence: CH)
  Receive Date: 20240327
  Receipt Date: 20240918
  Transmission Date: 20241017
  Serious: Yes (Death, Other)
  Sender: AMERICAN REGENT
  Company Number: CH-AMERICAN REGENT INC-2024001069

PATIENT
  Age: 87 Year
  Sex: Female
  Weight: 48 kg

DRUGS (12)
  1. FERINJECT [Suspect]
     Active Substance: FERRIC CARBOXYMALTOSE
     Indication: Hypochromic anaemia
     Dosage: 1000 MILLIGRAM
     Dates: start: 20240204, end: 20240204
  2. RISPERDAL [Suspect]
     Active Substance: RISPERIDONE
     Indication: Delirium
     Dosage: MAX. 2 MG/DAY, AS REQUIRED (1 MG)
     Route: 048
     Dates: start: 20240204, end: 20240205
  3. RISPERDAL [Suspect]
     Active Substance: RISPERIDONE
     Indication: Restlessness
  4. ACETAMINOPHEN [Suspect]
     Active Substance: ACETAMINOPHEN
     Indication: Pain
     Dosage: 1 G PARACETAMOL PER 100 ML (1 GRAM, 1 IN 1 TOTAL)
     Dates: start: 20240204, end: 20240204
  5. ACETAMINOPHEN [Suspect]
     Active Substance: ACETAMINOPHEN
     Dosage: UNK
     Route: 065
     Dates: start: 20240204
  6. FRAGMIN [Suspect]
     Active Substance: DALTEPARIN SODIUM
     Indication: Thrombosis prophylaxis
     Dosage: 5000 INTERNATIONAL UNIT, 1 D
     Route: 058
     Dates: start: 20240203, end: 20240204
  7. PANTOPRAZOLE SODIUM [Suspect]
     Active Substance: PANTOPRAZOLE SODIUM
     Indication: Dysphagia
     Dosage: 40 MILLIGRAM, 1 IN 12 HR
  8. PANTOPRAZOLE SODIUM [Suspect]
     Active Substance: PANTOPRAZOLE SODIUM
     Indication: Gastrointestinal haemorrhage
  9. NITROLINGUAL [Suspect]
     Active Substance: NITROGLYCERIN
     Indication: Product used for unknown indication
     Dosage: UNK
     Route: 065
     Dates: start: 2024
  10. NITROLINGUAL [Suspect]
     Active Substance: NITROGLYCERIN
     Dosage: UNK
     Route: 065
     Dates: start: 20240204
  11. ONDANSETRON [Suspect]
     Active Substance: ONDANSETRON
     Indication: Product used for unknown indication
     Dosage: UNK
     Route: 065
     Dates: start: 2024
  12. ONDANSETRON [Suspect]
     Active Substance: ONDANSETRON
     Dosage: UNK
     Route: 065
     Dates: start: 20240204

REACTIONS (13)
  - Hypertensive crisis [Fatal]
  - Chest pain [Fatal]
  - Nausea [Fatal]
  - Hypoxia [Fatal]
  - Micturition urgency [Fatal]
  - Tachycardia [Fatal]
  - Choking [Fatal]
  - Musculoskeletal chest pain [Fatal]
  - Dyspnoea [Fatal]
  - Restlessness [Unknown]
  - Thinking abnormal [Unknown]
  - Oliguria [Unknown]
  - Dizziness [Unknown]

NARRATIVE: CASE EVENT DATE: 20240204
